FAERS Safety Report 7138416-5 (Version None)
Quarter: 2010Q4

REPORT INFORMATION
  Report Type: 
  Country: None (occurrence: None)
  Receive Date: 20101115
  Receipt Date: 20101108
  Transmission Date: 20110411
  Serious: Yes (Other)
  Sender: FDA-Public Use
  Company Number: AEUSA201000421

PATIENT
  Age: 3 Year

DRUGS (1)
  1. GAMUNEX [Suspect]
     Indication: BONE MARROW TRANSPLANT
     Dosage: IV
     Route: 042

REACTIONS (1)
  - ANTI-THYROID ANTIBODY POSITIVE [None]
